FAERS Safety Report 11457158 (Version 1)
Quarter: 2015Q3

REPORT INFORMATION
  Report Type: Spontaneous
  Country: GB (occurrence: GB)
  Receive Date: 20150904
  Receipt Date: 20150904
  Transmission Date: 20151125
  Serious: Yes (Other)
  Sender: FDA-Public Use
  Company Number: GB-TEVA-588687ACC

PATIENT
  Age: 94 Year
  Sex: Female
  Weight: 49 kg

DRUGS (19)
  1. LORATADINE. [Concomitant]
     Active Substance: LORATADINE
     Dosage: 1 DOSAGE FORMS DAILY;
     Dates: start: 20150217, end: 20150727
  2. FUROSEMIDE. [Concomitant]
     Active Substance: FUROSEMIDE
     Dosage: 1 DOSAGE FORMS DAILY; IN THE MORNING
     Dates: start: 20150205
  3. LACRI-LUBE [Concomitant]
     Dosage: USE AS DIRECTED
     Dates: start: 20141125
  4. PIVMECILLINAM [Concomitant]
     Active Substance: PENICILLIN
     Dosage: TAKE TWO AS A SINGLE DOSE THEN ONE THREE TIMES.
     Dates: start: 20150707, end: 20150710
  5. CITALOPRAM [Concomitant]
     Active Substance: CITALOPRAM HYDROBROMIDE
     Dosage: 1 DOSAGE FORMS DAILY;
     Dates: start: 20150217
  6. FERROUS SULFATE [Concomitant]
     Active Substance: FERROUS SULFATE\FERROUS SULFATE, DRIED
     Dosage: 3 DOSAGE FORMS DAILY;
     Dates: start: 20150610
  7. MUCODYNE [Concomitant]
     Active Substance: CARBOCYSTEINE
     Dosage: 30 ML DAILY;
     Dates: start: 20141125
  8. DIGOXIN. [Concomitant]
     Active Substance: DIGOXIN
     Dosage: 1 DOSAGE FORMS DAILY;
     Dates: start: 20150205
  9. GLIMEPIRIDE. [Concomitant]
     Active Substance: GLIMEPIRIDE
     Dosage: 1 DOSAGE FORMS DAILY;
     Dates: start: 20150427
  10. FOLIC ACID. [Suspect]
     Active Substance: FOLIC ACID
     Dates: start: 20150720
  11. MONTELUKAST [Concomitant]
     Active Substance: MONTELUKAST SODIUM
     Dosage: 1 DOSAGE FORMS DAILY; AT NIGHT
     Dates: start: 20150217
  12. OMEPRAZOLE. [Concomitant]
     Active Substance: OMEPRAZOLE
     Dosage: 1 DOSAGE FORMS DAILY;
     Dates: start: 20150708, end: 20150805
  13. SERETIDE [Concomitant]
     Active Substance: FLUTICASONE FUROATE\SALMETEROL XINAFOATE
     Dosage: 4 DOSAGE FORMS DAILY;
     Route: 055
     Dates: start: 20150217
  14. BECLOMETASONE [Concomitant]
     Active Substance: BECLOMETHASONE DIPROPIONATE
     Dosage: 4 DOSAGE FORMS DAILY;
     Route: 055
     Dates: start: 20150423
  15. LOSARTAN. [Concomitant]
     Active Substance: LOSARTAN
     Dosage: 1 DOSAGE FORMS DAILY;
     Dates: start: 20150205
  16. PARACETAMOL [Concomitant]
     Active Substance: ACETAMINOPHEN
     Dosage: EVERY 4 TO 6 HOURS.
     Dates: start: 20150217
  17. MICRALAX [Concomitant]
     Dates: start: 20141125
  18. DIHYDROCODEINE [Concomitant]
     Active Substance: DIHYDROCODEINE
     Dosage: TAKE 1 OR 2 UP TO 3 TIMES A DAY
     Dates: start: 20150217
  19. LAXIDO [Concomitant]
     Active Substance: POLYETHYLENE GLYCOL 3350\POTASSIUM CHLORIDE\SODIUM BICARBONATE\SODIUM CHLORIDE
     Dosage: DISSOLVE THE CONTENTS OF ONE SACHET IN HALF A GLASS
     Dates: start: 20141125

REACTIONS (1)
  - Angioedema [Recovered/Resolved]

NARRATIVE: CASE EVENT DATE: 20150721
